FAERS Safety Report 4979875-3 (Version None)
Quarter: 2006Q2

REPORT INFORMATION
  Report Type: 
  Country: None (occurrence: None)
  Receive Date: 20060421
  Receipt Date: 20051114
  Transmission Date: 20061013
  Serious: Yes (Hospitalization)
  Sender: FDA-Public Use
  Company Number: US-MERCK-0511USA02717

PATIENT
  Age: 81 Year
  Sex: Female
  Weight: 67 kg

DRUGS (4)
  1. VIOXX [Suspect]
     Indication: ARTHRALGIA
     Route: 048
     Dates: start: 20010520, end: 20041001
  2. VIOXX [Suspect]
     Route: 048
     Dates: start: 20010520, end: 20041001
  3. VASOTEC [Concomitant]
     Route: 048
  4. ASPIRIN [Concomitant]
     Route: 065

REACTIONS (10)
  - ANHEDONIA [None]
  - ANXIETY [None]
  - CARDIOVASCULAR DISORDER [None]
  - CEREBROVASCULAR ACCIDENT [None]
  - DEEP VEIN THROMBOSIS [None]
  - MYOCARDIAL INFARCTION [None]
  - PULMONARY EMBOLISM [None]
  - RENAL DISORDER [None]
  - RENAL FAILURE [None]
  - THROMBOSIS [None]
